FAERS Safety Report 11543864 (Version 1)
Quarter: 2015Q3

REPORT INFORMATION
  Report Type: Report from Study
  Country: US (occurrence: US)
  Receive Date: 20150924
  Receipt Date: 20150924
  Transmission Date: 20151125
  Serious: No
  Sender: FDA-Public Use
  Company Number: US-AMGEN-USASL2015094040

PATIENT
  Sex: Female

DRUGS (1)
  1. ENBREL [Suspect]
     Active Substance: ETANERCEPT
     Indication: RHEUMATOID ARTHRITIS
     Dosage: UNK
     Route: 065

REACTIONS (13)
  - Injection site pain [Unknown]
  - Vein disorder [Unknown]
  - Injection site erythema [Unknown]
  - Swelling [Unknown]
  - Drug dose omission [Unknown]
  - Injection site pruritus [Unknown]
  - Arthralgia [Unknown]
  - Urticaria [Unknown]
  - Hypersensitivity [Unknown]
  - Musculoskeletal stiffness [Unknown]
  - Dizziness [Unknown]
  - Vein discolouration [Unknown]
  - Back pain [Unknown]

NARRATIVE: CASE EVENT DATE: 2015
